FAERS Safety Report 6746903-4 (Version None)
Quarter: 2010Q2

REPORT INFORMATION
  Report Type: 
  Country: None (occurrence: None)
  Receive Date: 20100528
  Receipt Date: 20091218
  Transmission Date: 20101027
  Serious: No
  Sender: FDA-Public Use
  Company Number: US-ASTRAZENECA-2009SE33271

PATIENT
  Sex: Male

DRUGS (2)
  1. PRILOSEC OTC [Suspect]
     Indication: GASTROINTESTINAL HAEMORRHAGE
     Route: 048
     Dates: start: 20091001
  2. PRILOSEC OTC [Suspect]
     Indication: GASTRIC DISORDER
     Route: 048
     Dates: start: 20091001

REACTIONS (2)
  - DERMATITIS [None]
  - PRURITUS GENERALISED [None]
